FAERS Safety Report 7328217-7 (Version None)
Quarter: 2011Q1

REPORT INFORMATION
  Report Type: 
  Country: None (occurrence: None)
  Receive Date: 20110224
  Receipt Date: 20110224
  Transmission Date: 20110831
  Serious: Yes (Other)
  Sender: FDA-Public Use
  Company Number: None

PATIENT
  Age: 36 Year
  Sex: Female
  Weight: 60.782 kg

DRUGS (1)
  1. GIANVI (GENERIC OF YAZ) [Suspect]
     Indication: CONTRACEPTION
     Dosage: ONE PILL EVERY DAY FOR ~PAST 6 WEEKS

REACTIONS (3)
  - MOOD ALTERED [None]
  - PRODUCT SUBSTITUTION ISSUE [None]
  - ACNE [None]
